FAERS Safety Report 6274072-6 (Version None)
Quarter: 2009Q3

REPORT INFORMATION
  Report Type: 
  Country: None (occurrence: None)
  Receive Date: 20090720
  Receipt Date: 19960313
  Transmission Date: 20100115
  Serious: Yes (Hospitalization)
  Sender: FDA-Public Use
  Company Number: PHBS1995US05459

PATIENT
  Age: 63 Year
  Sex: Male
  Weight: 70 kg

DRUGS (3)
  1. FAMVIR [Suspect]
     Dosage: 500 MG, TID
     Route: 048
     Dates: start: 19951017, end: 19951021
  2. METAFORM (PROTEIN POWDER MIX) [Concomitant]
     Dosage: UNK, UNK
     Dates: start: 19950101
  3. PROTEIN POWDER [Concomitant]
     Dosage: UNK, UNK
     Dates: start: 19950101

REACTIONS (8)
  - ALBUMINURIA [None]
  - AUTOIMMUNE DISORDER [None]
  - BLOOD UREA INCREASED [None]
  - DIZZINESS [None]
  - HAEMATURIA [None]
  - NEPHRITIS [None]
  - RENAL FAILURE ACUTE [None]
  - THERAPEUTIC RESPONSE INCREASED [None]
